FAERS Safety Report 13193826 (Version 1)
Quarter: 2017Q1

REPORT INFORMATION
  Report Type: Spontaneous
  Country: RU (occurrence: RU)
  Receive Date: 20170207
  Receipt Date: 20170207
  Transmission Date: 20170428
  Serious: Yes (Other)
  Sender: FDA-Public Use
  Company Number: RU-TEVA-735293ISR

PATIENT
  Age: 73 Year
  Sex: Female

DRUGS (1)
  1. CORINFAR UNO [Suspect]
     Active Substance: NIFEDIPINE
     Route: 065

REACTIONS (2)
  - Lacunar infarction [Unknown]
  - Insomnia [Unknown]
